FAERS Safety Report 9238077 (Version 1)
Quarter: 2013Q2

REPORT INFORMATION
  Report Type: Spontaneous
  Country: BR (occurrence: BR)
  Receive Date: 20130418
  Receipt Date: 20130418
  Transmission Date: 20140414
  Serious: Yes (Hospitalization)
  Sender: FDA-Public Use
  Company Number: PHHY2013BR035239

PATIENT
  Age: 59 Year
  Sex: Female

DRUGS (1)
  1. CODATEN [Suspect]
     Indication: ARTHRALGIA
     Dosage: UNK UKN, UNK
     Route: 048

REACTIONS (5)
  - Hypothermia [Recovered/Resolved]
  - Dizziness [Recovered/Resolved]
  - Paraesthesia oral [Recovered/Resolved]
  - Vomiting [Recovered/Resolved]
  - Paraesthesia [Recovered/Resolved]
